FAERS Safety Report 17375511 (Version 2)
Quarter: 2020Q4

REPORT INFORMATION
  Report Type: Spontaneous
  Country: US (occurrence: US)
  Receive Date: 20200206
  Receipt Date: 20201202
  Transmission Date: 20210113
  Serious: Yes (Other)
  Sender: FDA-Public Use
  Company Number: US-SA-2020SA028656

PATIENT

DRUGS (1)
  1. ZANTAC 75 [Suspect]
     Active Substance: RANITIDINE HYDROCHLORIDE
     Dosage: ALMOST EVERY DAY; USED BY PRESCRIPTION AND OVER THE COUNTER
     Dates: start: 199801, end: 200712

REACTIONS (2)
  - Pancreatic carcinoma [Unknown]
  - Injury [Unknown]

NARRATIVE: CASE EVENT DATE: 200909
